FAERS Safety Report 10370351 (Version 1)
Quarter: 2014Q3

REPORT INFORMATION
  Report Type: Other
  Country: DE (occurrence: DE)
  Receive Date: 20140808
  Receipt Date: 20140808
  Transmission Date: 20150326
  Serious: No
  Sender: FDA-Public Use
  Company Number: DE-LUPIN PHARMACEUTICALS INC.-E2B_00002275

PATIENT
  Age: 69 Year
  Sex: Male
  Weight: 100 kg

DRUGS (2)
  1. HYDROCHLORTHIAZIDE [Concomitant]
     Active Substance: HYDROCHLOROTHIAZIDE
     Indication: HYPERTENSION
     Route: 048
     Dates: start: 20131118, end: 20140519
  2. LOSARTAN [Suspect]
     Active Substance: LOSARTAN
     Indication: HYPERTENSION
     Route: 048
     Dates: start: 20131118, end: 20140519

REACTIONS (4)
  - Nasal dryness [Recovered/Resolved]
  - Chapped lips [Recovered/Resolved]
  - Dry mouth [Recovered/Resolved]
  - Lip dry [Recovered/Resolved]

NARRATIVE: CASE EVENT DATE: 20131118
